FAERS Safety Report 5041879-2 (Version None)
Quarter: 2006Q2

REPORT INFORMATION
  Report Type: 
  Country: None (occurrence: None)
  Receive Date: 20060627
  Receipt Date: 20060612
  Transmission Date: 20061013
  Serious: Yes (Hospitalization, Other)
  Sender: FDA-Public Use
  Company Number: 2006074905

PATIENT
  Sex: Male
  Weight: 129.2752 kg

DRUGS (1)
  1. BEXTRA [Suspect]
     Indication: ARTHRITIS
     Dosage: 30 MG (10 MG, 3 IN 1 D)
     Dates: start: 20010101, end: 20010601

REACTIONS (11)
  - ARTERIOSCLEROSIS [None]
  - CEREBELLAR INFARCTION [None]
  - CEREBRAL ARTERY STENOSIS [None]
  - CEREBROVASCULAR ACCIDENT [None]
  - CHEST PAIN [None]
  - CONFUSIONAL STATE [None]
  - DEPRESSION [None]
  - FALL [None]
  - HYPOKINESIA [None]
  - INCONTINENCE [None]
  - SPEECH DISORDER [None]
